APPROVED DRUG PRODUCT: BETAMETHASONE SODIUM PHOSPHATE
Active Ingredient: BETAMETHASONE SODIUM PHOSPHATE
Strength: EQ 3MG BASE/ML
Dosage Form/Route: INJECTABLE;INJECTION
Application: A085738 | Product #001
Applicant: WATSON LABORATORIES INC
Approved: Approved Prior to Jan 1, 1982 | RLD: No | RS: No | Type: DISCN